FAERS Safety Report 12091115 (Version 1)
Quarter: 2016Q1

REPORT INFORMATION
  Report Type: Spontaneous
  Country: US (occurrence: US)
  Receive Date: 20160218
  Receipt Date: 20160218
  Transmission Date: 20160526
  Serious: Yes (Hospitalization, Other)
  Sender: FDA-Public Use
  Company Number: US-CHARTWELL LIFE SCIENCE LLC-2016CHA00002

PATIENT
  Age: 69 Year
  Sex: Male

DRUGS (13)
  1. DOCUSATE SENNA [Concomitant]
  2. LORATADINE. [Concomitant]
     Active Substance: LORATADINE
  3. HYDROCORTISONE/ ALOE TOPICAL CREAM [Concomitant]
  4. MENTHOL/CAMPHOR TOPICAL LOTION [Concomitant]
  5. DOXYCYCLINE. [Suspect]
     Active Substance: DOXYCYCLINE
     Indication: WOUND INFECTION
     Dosage: 100 MG, 2X/DAY
     Route: 048
  6. METHADONE [Concomitant]
     Active Substance: METHADONE HYDROCHLORIDE
  7. FLUOXETINE [Concomitant]
     Active Substance: FLUOXETINE HYDROCHLORIDE
  8. RANITIDINE [Concomitant]
     Active Substance: RANITIDINE\RANITIDINE HYDROCHLORIDE
  9. PREGABALIN. [Concomitant]
     Active Substance: PREGABALIN
  10. TRAZODONE [Concomitant]
     Active Substance: TRAZODONE HYDROCHLORIDE
  11. POLYETHYLENE GLYCOL [Concomitant]
     Active Substance: POLYETHYLENE GLYCOLS
  12. BISACODYL. [Concomitant]
     Active Substance: BISACODYL
  13. AMITRIPTYLINE [Concomitant]
     Active Substance: AMITRIPTYLINE

REACTIONS (3)
  - Drug reaction with eosinophilia and systemic symptoms [Unknown]
  - Delirium [Unknown]
  - Tubulointerstitial nephritis [Recovering/Resolving]
